FAERS Safety Report 18571054 (Version 1)
Quarter: 2020Q4

REPORT INFORMATION
  Report Type: Spontaneous
  Country: US (occurrence: US)
  Receive Date: 20201202
  Receipt Date: 20201202
  Transmission Date: 20210114
  Serious: No
  Sender: FDA-Public Use
  Company Number: US-NOVEN PHARMACEUTICALS, INC.-US2020000119

PATIENT

DRUGS (4)
  1. AGX ESTRADIOL FOR MINIVELLE [Suspect]
     Active Substance: ESTRADIOL
     Indication: BLOOD OESTROGEN DECREASED
  2. PROGESTERONE. [Concomitant]
     Active Substance: PROGESTERONE
  3. AGX ESTRADIOL FOR MINIVELLE [Suspect]
     Active Substance: ESTRADIOL
     Indication: OFF LABEL USE
     Dosage: 0.1 MG, UNKNOWN
     Route: 062
     Dates: start: 202001
  4. CYMBALTA [Concomitant]
     Active Substance: DULOXETINE HYDROCHLORIDE

REACTIONS (5)
  - Off label use [Not Recovered/Not Resolved]
  - Product adhesion issue [Recovered/Resolved]
  - Incorrect product administration duration [Recovered/Resolved]
  - Crying [Recovering/Resolving]
  - Feeling abnormal [Recovering/Resolving]

NARRATIVE: CASE EVENT DATE: 202001
